FAERS Safety Report 14914643 (Version 3)
Quarter: 2018Q4

REPORT INFORMATION
  Report Type: Report from Study
  Country: US (occurrence: US)
  Receive Date: 20180518
  Receipt Date: 20181001
  Transmission Date: 20190204
  Serious: Yes (Other)
  Sender: FDA-Public Use
  Company Number: US-JAZZ-2018-US-005221

PATIENT
  Sex: Female

DRUGS (28)
  1. XYREM [Suspect]
     Active Substance: SODIUM OXYBATE
     Dosage: 3 G, BID
     Route: 048
     Dates: start: 201706, end: 2018
  2. FOLIC ACID. [Concomitant]
     Active Substance: FOLIC ACID
  3. IBUPROFEN. [Concomitant]
     Active Substance: IBUPROFEN
  4. LEVOTHYROXINE. [Concomitant]
     Active Substance: LEVOTHYROXINE
  5. TOCOPHEROL [Concomitant]
     Active Substance: TOCOPHEROL
  6. SYNTHROID [Concomitant]
     Active Substance: LEVOTHYROXINE SODIUM
  7. ASPIRIN EC [Concomitant]
     Active Substance: ASPIRIN
  8. CHIA SEED [Concomitant]
  9. CALCIUM CARBONATE. [Concomitant]
     Active Substance: CALCIUM CARBONATE
  10. FISH OIL W/TOCOPHEROL [Concomitant]
  11. OXYCODONE AND ACETAMINOPHEN [Concomitant]
     Active Substance: ACETAMINOPHEN\OXYCODONE HYDROCHLORIDE
  12. VITAMIN D3 [Concomitant]
     Active Substance: CHOLECALCIFEROL
  13. NUVIGIL [Concomitant]
     Active Substance: ARMODAFINIL
  14. EVENING PRIMROSE OIL [Concomitant]
     Active Substance: EVENING PRIMROSE OIL\HERBALS
  15. TOVIAZ [Concomitant]
     Active Substance: FESOTERODINE FUMARATE
  16. OLIVE OIL [Concomitant]
     Active Substance: OLIVE OIL
  17. XYREM [Suspect]
     Active Substance: SODIUM OXYBATE
     Indication: NARCOLEPSY
     Dosage: 2.25 G, BID
     Route: 048
     Dates: start: 201307, end: 201405
  18. XYREM [Suspect]
     Active Substance: SODIUM OXYBATE
     Dosage: 3.25 G, BID
     Route: 048
     Dates: start: 201601, end: 2017
  19. TRAMADOL HCL [Concomitant]
     Active Substance: TRAMADOL HYDROCHLORIDE
  20. FIBER [Concomitant]
     Active Substance: PSYLLIUM HUSK
  21. FLAXSEED [Concomitant]
     Active Substance: FLAX SEED
  22. MIDODRINE HCL [Concomitant]
     Active Substance: MIDODRINE HYDROCHLORIDE
  23. ELEUTHEROCOCCUS SENTICOSUS ROOT [Concomitant]
  24. XYREM [Suspect]
     Active Substance: SODIUM OXYBATE
     Dosage: 2.5 G, BID
     Route: 048
     Dates: start: 201412, end: 201601
  25. LEXAPRO [Concomitant]
     Active Substance: ESCITALOPRAM OXALATE
  26. INDERAL [Concomitant]
     Active Substance: PROPRANOLOL HYDROCHLORIDE
  27. ANGELICA SINENSIS [Concomitant]
     Active Substance: ANGELICA SINENSIS ROOT
  28. ZINGIBER OFFICINALE RHIZOME [Concomitant]

REACTIONS (4)
  - Suicidal ideation [Unknown]
  - Depression [Unknown]
  - Hyperhidrosis [Recovered/Resolved]
  - Mood altered [Unknown]
